FAERS Safety Report 9236036 (Version 1)
Quarter: 2013Q1

REPORT INFORMATION
  Report Type: Spontaneous
  Country: US (occurrence: None)
  Receive Date: 20121031
  Receipt Date: 20121031
  Transmission Date: 20140127
  Serious: Yes (Other)
  Sender: FDA-Public Use
  Company Number: PHEH2012US012000

PATIENT
  Age: 33 Year
  Sex: Female
  Weight: 153 kg

DRUGS (6)
  1. GILENYA [Suspect]
     Indication: MULTIPLE SCLEROSIS
     Route: 048
     Dates: start: 201107
  2. REQUIP [Concomitant]
  3. LYRICA [Concomitant]
  4. TIZANIDINE [Concomitant]
  5. ZOLOFT [Concomitant]
  6. SEROQUEL [Concomitant]

REACTIONS (1)
  - Depression [None]
